FAERS Safety Report 20210087 (Version 1)
Quarter: 2021Q4

REPORT INFORMATION
  Report Type: Other
  Country: US (occurrence: None)
  Receive Date: 20211221
  Receipt Date: 20211221
  Transmission Date: 20220303
  Serious: Yes (Other)
  Sender: FDA-Public Use
  Company Number: US-ROCHE-2947175

PATIENT
  Age: 70 Year
  Sex: Female
  Weight: 56.750 kg

DRUGS (11)
  1. HERCEPTIN [Suspect]
     Active Substance: TRASTUZUMAB
     Indication: Breast cancer metastatic
     Dosage: NO
     Route: 042
     Dates: start: 20210721, end: 20211013
  2. PERJETA [Suspect]
     Active Substance: PERTUZUMAB
     Indication: Breast cancer metastatic
     Dosage: NO
     Route: 042
     Dates: start: 20210721, end: 20211013
  3. GLATIRAMER ACETATE [Concomitant]
     Active Substance: GLATIRAMER ACETATE
     Indication: Multiple sclerosis
     Route: 058
     Dates: start: 2006
  4. LEVOTHYROXINE [Concomitant]
     Active Substance: LEVOTHYROXINE
     Indication: Thyroidectomy
     Route: 048
     Dates: start: 2002
  5. CALTRATE D3 [Concomitant]
     Route: 048
  6. VITAMIN D3 [Concomitant]
     Active Substance: CHOLECALCIFEROL
     Indication: Multiple sclerosis
     Dosage: STARTED BEFORE HERCEPTIN AND PERJETA
     Route: 048
  7. BIOTIN [Concomitant]
     Active Substance: BIOTIN
     Dosage: STARTED BEFORE HERCEPTIN AND PERJETA
     Route: 048
  8. CLARITIN [Concomitant]
     Active Substance: LORATADINE
     Indication: Seasonal allergy
     Route: 048
  9. FLONASE [Concomitant]
     Active Substance: FLUTICASONE PROPIONATE
     Indication: Seasonal allergy
     Dosage: 1 SPRAY (50 MCG) EACH NOSTRIL DAILY; STARTED BEFORE HERCEPTIN AND?PERJETA
     Route: 045
  10. VITAMIN C [Concomitant]
     Active Substance: ASCORBIC ACID
     Indication: Nasopharyngitis
     Dosage: STARTED BEFORE HERCEPTIN AND PERJETA
     Route: 048
  11. TRIPLE FLEX [Concomitant]
     Dosage: WITH GLUCOSAMINE AND D3; STARTED BEFORE HERCEPTIN AND PERJETA
     Route: 048

REACTIONS (2)
  - Disease progression [Not Recovered/Not Resolved]
  - Drug ineffective [Unknown]

NARRATIVE: CASE EVENT DATE: 20211018
